FAERS Safety Report 7698937-3 (Version None)
Quarter: 2011Q3

REPORT INFORMATION
  Report Type: 
  Country: None (occurrence: None)
  Receive Date: 20110819
  Receipt Date: 20110811
  Transmission Date: 20111222
  Serious: Yes (Other)
  Sender: FDA-Public Use
  Company Number: TH-GENENTECH-321948

PATIENT
  Sex: Female

DRUGS (4)
  1. MABTHERA [Suspect]
     Dosage: UNK
     Route: 042
     Dates: start: 20100609
  2. MABTHERA [Suspect]
     Dosage: UNK
     Route: 042
     Dates: start: 20110119
  3. MABTHERA [Suspect]
     Indication: RHEUMATOID ARTHRITIS
     Dosage: 1000 MG, UNK
     Route: 042
     Dates: start: 20100526
  4. MABTHERA [Suspect]
     Dosage: UNK
     Route: 042
     Dates: start: 20110202

REACTIONS (1)
  - TUBERCULOSIS [None]
